FAERS Safety Report 9555234 (Version 1)
Quarter: 2013Q3

REPORT INFORMATION
  Report Type: Spontaneous
  Country: US (occurrence: None)
  Receive Date: 20130813
  Receipt Date: 20130813
  Transmission Date: 20140515
  Serious: Yes (Other)
  Sender: FDA-Public Use
  Company Number: CC400176088

PATIENT
  Age: 68 Year
  Sex: Female
  Weight: 122 kg

DRUGS (1)
  1. HEPARIN SODIUM 100 UNITS/ML IN 5 % DEXTROSE [Suspect]
     Indication: ATRIAL FIBRILLATION
     Dosage: 1130 HOURS

REACTIONS (2)
  - Activated partial thromboplastin time prolonged [None]
  - Gastrointestinal haemorrhage [None]
